FAERS Safety Report 15604355 (Version 1)
Quarter: 2018Q4

REPORT INFORMATION
  Report Type: Other
  Country: ES (occurrence: ES)
  Receive Date: 20181110
  Receipt Date: 20181110
  Transmission Date: 20190205
  Serious: Yes (Other)
  Sender: FDA-Public Use
  Company Number: ES-ALLIED PHARMA, LLC-2058689

PATIENT
  Age: 28 Year
  Sex: Male

DRUGS (2)
  1. ERYTHROMYCIN. [Suspect]
     Active Substance: ERYTHROMYCIN
     Route: 065
  2. CLARITHROMYCIN. [Suspect]
     Active Substance: CLARITHROMYCIN
     Indication: PHARYNGITIS
     Route: 065

REACTIONS (5)
  - Erythema [Recovered/Resolved]
  - Dizziness [Recovered/Resolved]
  - Affect lability [Recovered/Resolved]
  - Derealisation [Unknown]
  - Anxiety [Recovered/Resolved]
